FAERS Safety Report 6993418-4 (Version None)
Quarter: 2010Q3

REPORT INFORMATION
  Report Type: 
  Country: None (occurrence: None)
  Receive Date: 20100917
  Receipt Date: 20091204
  Transmission Date: 20110219
  Serious: No
  Sender: FDA-Public Use
  Company Number: US-ASTRAZENECA-2009SE30605

PATIENT
  Sex: Female

DRUGS (3)
  1. SEROQUEL [Suspect]
     Route: 048
  2. CLONOPIN [Concomitant]
  3. PRISTIQ [Concomitant]

REACTIONS (4)
  - AGITATION [None]
  - DRUG DOSE OMISSION [None]
  - INSOMNIA [None]
  - MOOD SWINGS [None]
